FAERS Safety Report 17597257 (Version 1)
Quarter: 2020Q1

REPORT INFORMATION
  Report Type: Spontaneous
  Country: US (occurrence: US)
  Receive Date: 20200330
  Receipt Date: 20200330
  Transmission Date: 20200409
  Serious: No
  Sender: FDA-Public Use
  Company Number: US-AUROBINDO-AUR-APL-2019-052056

PATIENT
  Sex: Female
  Weight: 73 kg

DRUGS (2)
  1. SERTRALINE HYDROCHLORIDE TABLETS 100MG [Suspect]
     Active Substance: SERTRALINE HYDROCHLORIDE
     Indication: ANXIETY
     Dosage: 100 MILLIGRAM, DAILY
     Route: 048
     Dates: end: 20190723
  2. SERTRALINE HYDROCHLORIDE TABLETS 100MG [Suspect]
     Active Substance: SERTRALINE HYDROCHLORIDE
     Dosage: UNK
     Route: 048
     Dates: start: 20190729, end: 20190731

REACTIONS (4)
  - Urticaria [Recovered/Resolved]
  - Influenza like illness [Unknown]
  - Drug withdrawal syndrome [Unknown]
  - Pruritus [Recovered/Resolved]
